FAERS Safety Report 25442204 (Version 1)
Quarter: 2025Q2

REPORT INFORMATION
  Report Type: Spontaneous
  Country: BG (occurrence: BG)
  Receive Date: 20250616
  Receipt Date: 20250616
  Transmission Date: 20250717
  Serious: Yes (Other)
  Sender: BRISTOL-MYERS SQUIBB COMPANY
  Company Number: BG-BRISTOL-MYERS SQUIBB COMPANY-2025-084357

PATIENT
  Age: 73 Year
  Sex: Female

DRUGS (2)
  1. OPDIVO [Suspect]
     Active Substance: NIVOLUMAB
     Indication: Transitional cell carcinoma
     Route: 042
     Dates: start: 20250121, end: 202503
  2. OPDIVO [Suspect]
     Active Substance: NIVOLUMAB
     Indication: Bladder cancer

REACTIONS (6)
  - Post procedural infection [Unknown]
  - Escherichia urinary tract infection [Unknown]
  - Pelvic abscess [Unknown]
  - Malignant neoplasm progression [Unknown]
  - Post procedural fistula [Unknown]
  - Klebsiella urinary tract infection [Unknown]

NARRATIVE: CASE EVENT DATE: 20250301
